FAERS Safety Report 20172702 (Version 2)
Quarter: 2022Q1

REPORT INFORMATION
  Report Type: Spontaneous
  Country: AT (occurrence: AT)
  Receive Date: 20211211
  Receipt Date: 20220124
  Transmission Date: 20220424
  Serious: Yes (Death, Other)
  Sender: FDA-Public Use
  Company Number: AT-AMGEN-AUTSP2021194835

PATIENT
  Age: 77 Year
  Sex: Male

DRUGS (4)
  1. FILGRASTIM [Suspect]
     Active Substance: FILGRASTIM
     Indication: Prophylaxis
     Dosage: UNK
     Route: 065
  2. ROMIPLOSTIM [Suspect]
     Active Substance: ROMIPLOSTIM
     Indication: Pancytopenia
     Dosage: UNK
     Route: 065
  3. ROMIPLOSTIM [Suspect]
     Active Substance: ROMIPLOSTIM
     Indication: Off label use
  4. AZACITIDINE [Concomitant]
     Active Substance: AZACITIDINE
     Dosage: UNK

REACTIONS (3)
  - Acute myeloid leukaemia [Fatal]
  - Thrombocytopenia [Unknown]
  - Off label use [Unknown]
